FAERS Safety Report 20716898 (Version 2)
Quarter: 2022Q2

REPORT INFORMATION
  Report Type: Report from Study
  Country: BG (occurrence: BG)
  Receive Date: 20220416
  Receipt Date: 20220427
  Transmission Date: 20220721
  Serious: Yes (Hospitalization)
  Sender: FDA-Public Use
  Company Number: BG-ALVOGEN-2022-ALVOGEN-119595

PATIENT
  Age: 68 Year
  Sex: Male

DRUGS (10)
  1. LISINOPRIL [Suspect]
     Active Substance: LISINOPRIL
     Indication: Chronic kidney disease
     Route: 048
     Dates: start: 20220302, end: 20220313
  2. SODIUM ZIRCONIUM CYCLOSILICATE [Suspect]
     Active Substance: SODIUM ZIRCONIUM CYCLOSILICATE
     Indication: Chronic kidney disease
     Route: 048
     Dates: start: 20220301, end: 20220301
  3. TRESIBA [Concomitant]
     Active Substance: INSULIN DEGLUDEC
     Indication: Type 2 diabetes mellitus
     Dates: start: 2012
  4. BISOPROLOL FUMARATE [Concomitant]
     Active Substance: BISOPROLOL FUMARATE
     Indication: Hypertension
     Dates: start: 2017
  5. ACTRAPID [Concomitant]
     Active Substance: INSULIN HUMAN
     Indication: Type 2 diabetes mellitus
     Dates: start: 2020
  6. AMLODIPINE MESYLATE [Concomitant]
     Active Substance: AMLODIPINE MESYLATE
     Indication: Hypertension
     Dates: start: 2020, end: 20220316
  7. XALATAN [Concomitant]
     Active Substance: LATANOPROST
     Indication: Glaucoma
     Dates: start: 2020
  8. AGLANDIB COMP [Concomitant]
     Indication: Benign prostatic hyperplasia
     Dates: start: 202108
  9. AGLANDIB COMP [Concomitant]
     Indication: Benign prostatic hyperplasia
     Dates: start: 202108
  10. METFORMIN HYDROCHLORIDE [Concomitant]
     Active Substance: METFORMIN HYDROCHLORIDE
     Indication: Type 2 diabetes mellitus
     Dates: start: 20220110

REACTIONS (2)
  - Hypertensive crisis [Recovered/Resolved]
  - Cardiac failure [Recovering/Resolving]

NARRATIVE: CASE EVENT DATE: 20220330
